FAERS Safety Report 7511528-X (Version None)
Quarter: 2011Q2

REPORT INFORMATION
  Report Type: 
  Country: None (occurrence: None)
  Receive Date: 20110531
  Receipt Date: 20110524
  Transmission Date: 20111010
  Serious: Yes (Other)
  Sender: FDA-Public Use
  Company Number: US-PFIZER INC-2011112965

PATIENT
  Sex: Female

DRUGS (1)
  1. FIBERCON [Suspect]
     Dosage: UNK
     Route: 048

REACTIONS (1)
  - RECTAL HAEMORRHAGE [None]
